FAERS Safety Report 25715288 (Version 2)
Quarter: 2025Q4

REPORT INFORMATION
  Report Type: Spontaneous
  Country: US (occurrence: US)
  Receive Date: 20250822
  Receipt Date: 20251112
  Transmission Date: 20260117
  Serious: Yes (Other)
  Sender: BAYER HEALTHCARE PHARMACEUTICALS INC.
  Company Number: US-BAYER-2025A109241

PATIENT
  Age: 44 Year
  Sex: Male

DRUGS (4)
  1. JIVI [Suspect]
     Active Substance: DAMOCTOCOG ALFA PEGOL
     Indication: Factor VIII deficiency
     Dosage: JIVI 2000, INFUSE 6000 UNITS (5400-6600) SLOW IV PUSH EVERY 4 DAYS FOR PREVENTION OF BLEEDING AND AS
     Route: 042
     Dates: start: 201207
  2. JIVI [Suspect]
     Active Substance: DAMOCTOCOG ALFA PEGOL
     Indication: Haemorrhage prophylaxis
     Dosage: JIVI 3000, INFUSE 6000 UNITS (5400-6600) SLOW IV PUSH EVERY 4 DAYS FOR PREVENTION OF BLEEDING AND AS
     Route: 042
     Dates: start: 201207
  3. JIVI [Suspect]
     Active Substance: DAMOCTOCOG ALFA PEGOL
     Indication: Factor VIII deficiency
     Dosage: 1 PRN DOSE TO CONTROL BLEED
     Route: 042
     Dates: start: 20250728, end: 20250728
  4. JIVI [Suspect]
     Active Substance: DAMOCTOCOG ALFA PEGOL
     Indication: Factor VIII deficiency
     Dosage: 1 PRN DOSE TO PREVENT BLEED
     Route: 042
     Dates: start: 202508, end: 202508

REACTIONS (3)
  - Haemorrhage [None]
  - Nephrolithiasis [None]
  - Tooth extraction [None]

NARRATIVE: CASE EVENT DATE: 20250728
